FAERS Safety Report 6963761-3 (Version None)
Quarter: 2010Q3

REPORT INFORMATION
  Report Type: 
  Country: None (occurrence: None)
  Receive Date: 20100902
  Receipt Date: 20100826
  Transmission Date: 20110219
  Serious: Yes (Hospitalization)
  Sender: FDA-Public Use
  Company Number: US-ROCHE-633661

PATIENT
  Sex: Male
  Weight: 124.5 kg

DRUGS (35)
  1. TOCILIZUMAB [Suspect]
     Indication: RHEUMATOID ARTHRITIS
     Dosage: THERAPY TEMPORARILY INTERRUPTED.
     Route: 042
     Dates: start: 20060307
  2. TOCILIZUMAB [Suspect]
     Route: 042
     Dates: start: 20090202
  3. TOCILIZUMAB [Suspect]
     Route: 042
     Dates: start: 20090302
  4. TOCILIZUMAB [Suspect]
     Route: 042
     Dates: start: 20090330
  5. TOCILIZUMAB [Suspect]
     Route: 042
     Dates: start: 20090427
  6. TOCILIZUMAB [Suspect]
     Dosage: DOSAGE FORM : INFUSION PERMANENTLY DISCONTINUED
     Route: 042
     Dates: end: 20090516
  7. TOCILIZUMAB [Suspect]
     Dosage: PREVIOUSLY ENROLLED IN WA18062.
     Route: 042
  8. MULTI-VITAMIN [Concomitant]
     Dates: start: 20050101
  9. OXYCODONE [Concomitant]
     Dates: start: 20051101
  10. OXYCODONE [Concomitant]
     Dates: start: 20051201
  11. FOLIC ACID [Concomitant]
     Dates: start: 20050608
  12. METHOTREXATE [Concomitant]
     Dosage: FREQUENCY REPORTED: QS
     Dates: start: 20070110
  13. METHOTREXATE [Concomitant]
     Dosage: ROUTE REPORTED: PO + IM.
     Dates: start: 20090202, end: 20090518
  14. DILTIAZEM [Concomitant]
     Dates: start: 19940101
  15. DILTIAZEM [Concomitant]
     Dates: start: 19960101
  16. ASPIRIN [Concomitant]
     Dates: start: 20070106
  17. ZOLOFT [Concomitant]
     Dates: start: 20060818
  18. ENALAPRIL [Concomitant]
     Dates: start: 20040101
  19. FLOMAX [Concomitant]
     Dates: start: 20070102
  20. FLOMAX [Concomitant]
     Dates: start: 20090216
  21. POTASSIUM [Concomitant]
     Dates: start: 20061230
  22. LASIX [Concomitant]
     Dates: start: 20061230
  23. LASIX [Concomitant]
     Dates: start: 20080416
  24. TAGAMET [Concomitant]
     Dates: start: 20070201
  25. SULFASALAZINE [Concomitant]
     Dates: start: 20090202
  26. RELAFEN [Concomitant]
     Dates: start: 20080211
  27. CYMBALTA [Concomitant]
     Dates: start: 20080616
  28. ROPINIROLE [Concomitant]
     Dates: start: 20081001
  29. CALCIUM [Concomitant]
     Dates: start: 20081205
  30. VITAMIN D [Concomitant]
     Dates: start: 20081205
  31. LUNESTA [Concomitant]
     Dates: start: 20090215, end: 20090615
  32. SIMVASTATIN [Concomitant]
     Dates: start: 20080430
  33. SIMVASTATIN [Concomitant]
     Dates: start: 20080430
  34. RITUXAN [Concomitant]
     Indication: RHEUMATOID ARTHRITIS
  35. METHYLPREDNISOLONE [Concomitant]
     Dosage: DOSE: VARIOUS, FREQUENCY: VARIOUS TIMES, ROUTE: ^IA^.
     Route: 050

REACTIONS (2)
  - METASTATIC CARCINOID TUMOUR [None]
  - NON-HODGKIN'S LYMPHOMA [None]
